FAERS Safety Report 14207181 (Version 2)
Quarter: 2018Q1

REPORT INFORMATION
  Report Type: Spontaneous
  Country: US (occurrence: US)
  Receive Date: 20171121
  Receipt Date: 20180206
  Transmission Date: 20180508
  Serious: No
  Sender: FDA-Public Use
  Company Number: US-JNJFOC-20171004166

PATIENT
  Sex: Female
  Weight: 77.57 kg

DRUGS (2)
  1. COGENTIN [Concomitant]
     Active Substance: BENZTROPINE MESYLATE
     Indication: EXTRAPYRAMIDAL DISORDER
     Route: 065
     Dates: start: 201705, end: 201712
  2. INVEGA SUSTENNA [Suspect]
     Active Substance: PALIPERIDONE PALMITATE
     Indication: SCHIZOPHRENIA
     Route: 030
     Dates: start: 201701, end: 20171002

REACTIONS (4)
  - Hyperprolactinaemia [Recovered/Resolved]
  - Weight increased [Unknown]
  - Amenorrhoea [Unknown]
  - Breast tenderness [Unknown]

NARRATIVE: CASE EVENT DATE: 2017
